FAERS Safety Report 16887273 (Version 2)
Quarter: 2020Q3

REPORT INFORMATION
  Report Type: Spontaneous
  Country: BR (occurrence: BR)
  Receive Date: 20191004
  Receipt Date: 20200922
  Transmission Date: 20201102
  Serious: Yes (Other)
  Sender: FDA-Public Use
  Company Number: BR-JNJFOC-20191001690

PATIENT
  Age: 64 Year
  Sex: Female

DRUGS (6)
  1. XARELTO [Suspect]
     Active Substance: RIVAROXABAN
     Dosage: 15 MG, QD
     Route: 048
     Dates: start: 201909
  2. XARELTO [Suspect]
     Active Substance: RIVAROXABAN
     Dosage: 10 MG, QD
     Route: 048
  3. XARELTO [Suspect]
     Active Substance: RIVAROXABAN
     Dosage: 20 MG
     Route: 048
     Dates: start: 202008
  4. REUQUINOL [Concomitant]
     Active Substance: HYDROXYCHLOROQUINE SULFATE
  5. XARELTO [Suspect]
     Active Substance: RIVAROXABAN
     Indication: THROMBOSIS
     Dosage: 20 MG, QD
     Route: 048
     Dates: start: 2015
  6. LIXIANA [Suspect]
     Active Substance: EDOXABAN TOSYLATE

REACTIONS (9)
  - Pharyngeal haemorrhage [Unknown]
  - Fatigue [Unknown]
  - Pharyngeal exudate [Unknown]
  - Burning sensation [Unknown]
  - Limb discomfort [Unknown]
  - Epistaxis [Recovered/Resolved]
  - Pain [Unknown]
  - Blood urine present [Unknown]
  - Thrombosis [Unknown]

NARRATIVE: CASE EVENT DATE: 201909
